FAERS Safety Report 5591208-0 (Version None)
Quarter: 2007Q4

REPORT INFORMATION
  Report Type: 
  Country: None (occurrence: None)
  Receive Date: 20071212
  Receipt Date: 20070814
  Transmission Date: 20080405
  Serious: Yes (Hospitalization, Disabling, Other)
  Sender: FDA-Public Use
  Company Number: USA-2007-0028804

PATIENT
  Sex: Male

DRUGS (3)
  1. OXYCONTIN [Suspect]
     Indication: VERTEBRAL INJURY
     Dosage: 40 MG, QID, ORAL
     Route: 048
     Dates: start: 19990101, end: 20010101
  2. MS CONTIN [Concomitant]
  3. LORAZEPAM [Concomitant]

REACTIONS (4)
  - ANXIETY [None]
  - DRUG ABUSE [None]
  - DRUG DEPENDENCE [None]
  - PAIN [None]
